FAERS Safety Report 14650631 (Version 1)
Quarter: 2018Q1

REPORT INFORMATION
  Report Type: Spontaneous
  Country: CA (occurrence: CA)
  Receive Date: 20180316
  Receipt Date: 20180316
  Transmission Date: 20180509
  Serious: Yes (Other)
  Sender: FDA-Public Use
  Company Number: CA-TEVA-2018-CA-868616

PATIENT
  Age: 47 Year
  Sex: Male

DRUGS (1)
  1. TEVA-CEFADROXIL [Suspect]
     Active Substance: CEFADROXIL
     Indication: SOFT TISSUE INFECTION
     Dosage: 1000 MILLIGRAM DAILY;
     Route: 048

REACTIONS (3)
  - Diarrhoea [Recovered/Resolved]
  - Vision blurred [Recovered/Resolved]
  - Nausea [Recovered/Resolved]
